FAERS Safety Report 18394977 (Version 2)
Quarter: 2021Q1

REPORT INFORMATION
  Report Type: Spontaneous
  Country: AU (occurrence: AU)
  Receive Date: 20201016
  Receipt Date: 20210219
  Transmission Date: 20210419
  Serious: Yes (Other)
  Sender: FDA-Public Use
  Company Number: AU-PURDUE-USA-2020-0171248

PATIENT
  Age: 87 Year
  Sex: Male

DRUGS (14)
  1. OXYCODONE HYDROCHLORIDE. [Suspect]
     Active Substance: OXYCODONE HYDROCHLORIDE
     Indication: PRODUCT USED FOR UNKNOWN INDICATION
     Dosage: 2.5 MG, PRN (AS NECESSARY UP TO 4 TIMES PER DAY)
     Route: 065
     Dates: start: 2017, end: 2017
  2. RISPERIDONE. [Suspect]
     Active Substance: RISPERIDONE
     Indication: DEMENTIA WITH LEWY BODIES
     Dosage: 0.5 MG, PRN (AS NECESSARY UP TO TWICE DAILY)
     Route: 065
     Dates: start: 2017, end: 2017
  3. RISPERIDONE. [Suspect]
     Active Substance: RISPERIDONE
     Dosage: 0.25 MG, Q12H
     Dates: start: 2017, end: 2017
  4. ALBUTEROL                          /00139501/ [Concomitant]
     Active Substance: ALBUTEROL
     Indication: CHRONIC OBSTRUCTIVE PULMONARY DISEASE
     Dosage: UNK, AM (IN THE MORNING)
     Route: 065
     Dates: start: 2017
  5. ALLOPURINOL. [Concomitant]
     Active Substance: ALLOPURINOL
     Indication: PRODUCT USED FOR UNKNOWN INDICATION
     Dosage: 300 MG, DAILY
     Route: 065
     Dates: end: 2017
  6. PARACETAMOL [Concomitant]
     Active Substance: ACETAMINOPHEN
     Indication: PRODUCT USED FOR UNKNOWN INDICATION
     Dosage: 500 MG, PRN (AS NECESSARY UP TO 4 TIMES PER DAY)
     Route: 065
     Dates: start: 2017, end: 2017
  7. PERINDOPRIL [Suspect]
     Active Substance: PERINDOPRIL
     Indication: PRODUCT USED FOR UNKNOWN INDICATION
     Dosage: 8 MG, DAILY
     Route: 065
     Dates: end: 2017
  8. THIAMINE. [Concomitant]
     Active Substance: THIAMINE
     Indication: PRODUCT USED FOR UNKNOWN INDICATION
     Dosage: 100 MG, DAILY
     Route: 065
     Dates: end: 2017
  9. SODIUM VALPROATE [Suspect]
     Active Substance: VALPROATE SODIUM
     Indication: PRODUCT USED FOR UNKNOWN INDICATION
     Dosage: UNK, DAILY (LIQUID, STRENGTH 40MG/ ML)
     Route: 065
     Dates: start: 201612
  10. TIOTROPIUM BROMIDE [Suspect]
     Active Substance: TIOTROPIUM BROMIDE
     Indication: PRODUCT USED FOR UNKNOWN INDICATION
     Dosage: 18 MCG, DAILY
     Route: 065
     Dates: end: 2017
  11. ASPIRIN                            /00002701/ [Concomitant]
     Active Substance: ASPIRIN
     Indication: PRODUCT USED FOR UNKNOWN INDICATION
     Dosage: 100 MG, DAILY
     Route: 065
     Dates: end: 2017
  12. BUPRENORPHINE. [Suspect]
     Active Substance: BUPRENORPHINE
     Indication: PRODUCT USED FOR UNKNOWN INDICATION
     Dosage: 5 MG, WEEKLY
     Route: 065
     Dates: start: 2017, end: 2017
  13. MIRTAZAPINE. [Suspect]
     Active Substance: MIRTAZAPINE
     Indication: PRODUCT USED FOR UNKNOWN INDICATION
     Dosage: 15 MG, DAILY
     Route: 065
     Dates: end: 2017
  14. ATORVASTATIN [Suspect]
     Active Substance: ATORVASTATIN
     Indication: PRODUCT USED FOR UNKNOWN INDICATION
     Dosage: 10 MG, DAILY
     Route: 065
     Dates: end: 2017

REACTIONS (23)
  - Mastication disorder [Recovering/Resolving]
  - Cognitive disorder [Recovering/Resolving]
  - Decreased gait velocity [Recovering/Resolving]
  - Muscular weakness [Recovering/Resolving]
  - Asthenia [Recovering/Resolving]
  - Condition aggravated [Recovering/Resolving]
  - Rib fracture [Recovering/Resolving]
  - Sarcopenia [Recovering/Resolving]
  - Communication disorder [Recovering/Resolving]
  - Dystonia [Recovered/Resolved]
  - Balance disorder [Recovering/Resolving]
  - Sedation [Recovering/Resolving]
  - Aptyalism [Recovering/Resolving]
  - Depressed level of consciousness [Recovering/Resolving]
  - Extrapyramidal disorder [Recovered/Resolved]
  - Tardive dyskinesia [Recovered/Resolved]
  - Malnutrition [Recovering/Resolving]
  - Muscle rigidity [Recovered/Resolved]
  - Joint injury [Recovering/Resolving]
  - Delirium [Recovering/Resolving]
  - Cachexia [Recovering/Resolving]
  - Fall [Recovering/Resolving]
  - Dysphagia [Recovering/Resolving]

NARRATIVE: CASE EVENT DATE: 2016
